FAERS Safety Report 10985015 (Version 1)
Quarter: 2015Q2

REPORT INFORMATION
  Report Type: Spontaneous
  Country: US (occurrence: US)
  Receive Date: 20150403
  Receipt Date: 20150403
  Transmission Date: 20150821
  Serious: Yes (Death)
  Sender: FDA-Public Use
  Company Number: US-ASTRAZENECA-2015SE28915

PATIENT
  Sex: Female

DRUGS (1)
  1. SYNAGIS [Suspect]
     Active Substance: PALIVIZUMAB
     Dosage: 50/0.5 MG/ML , 15 MG/KG MONTHLY
     Route: 030
     Dates: start: 20150211, end: 20150310

REACTIONS (1)
  - Cardiac failure [Fatal]
